FAERS Safety Report 10174545 (Version 1)
Quarter: 2014Q2

REPORT INFORMATION
  Report Type: Spontaneous
  Country: US (occurrence: US)
  Receive Date: 20140515
  Receipt Date: 20140515
  Transmission Date: 20141212
  Serious: No
  Sender: FDA-Public Use
  Company Number: US-PFIZER INC-2014131652

PATIENT
  Sex: Female

DRUGS (3)
  1. NORVASC [Suspect]
     Indication: HYPERTENSION
     Dosage: 2.5 MG, UNK
  2. NORVASC [Suspect]
     Dosage: 1.25MG, BY CUTTING THE 2.5MG TABLET IN TO HALF
  3. NORVASC [Suspect]
     Dosage: 2.5 MG, (TAKING ENTIRE TABLET OF AMLODIPINE 2.5MG)

REACTIONS (2)
  - Blood pressure inadequately controlled [Unknown]
  - Intentional product misuse [Unknown]
